FAERS Safety Report 19029896 (Version 1)
Quarter: 2021Q1

REPORT INFORMATION
  Report Type: Spontaneous
  Country: US (occurrence: US)
  Receive Date: 20210318
  Receipt Date: 20210318
  Transmission Date: 20210420
  Serious: No
  Sender: FDA-Public Use
  Company Number: US-JNJFOC-20210324222

PATIENT

DRUGS (2)
  1. INVOKANA [Suspect]
     Active Substance: CANAGLIFLOZIN
     Indication: PRODUCT USED FOR UNKNOWN INDICATION
     Route: 048
  2. LASIX [Suspect]
     Active Substance: FUROSEMIDE
     Indication: PRODUCT USED FOR UNKNOWN INDICATION
     Route: 065

REACTIONS (2)
  - Blood creatinine increased [Unknown]
  - Glomerular filtration rate decreased [Unknown]
